FAERS Safety Report 8889439 (Version 1)
Quarter: 2012Q4

REPORT INFORMATION
  Report Type: Spontaneous
  Country: US (occurrence: None)
  Receive Date: 20121031
  Receipt Date: 20121031
  Transmission Date: 20130627
  Serious: Yes (Death)
  Sender: FDA-Public Use
  Company Number: 2012MA012450

PATIENT
  Age: 2 Year
  Sex: Male
  Weight: 13.61 kg

DRUGS (3)
  1. LEVETIRACETAM [Suspect]
     Route: 048
  2. CARBAMAZEPINE [Concomitant]
  3. DIAZEPAM [Concomitant]

REACTIONS (2)
  - Dehydration [None]
  - Constipation [None]
